FAERS Safety Report 10668299 (Version 1)
Quarter: 2014Q4

REPORT INFORMATION
  Report Type: Spontaneous
  Country: GB (occurrence: GB)
  Receive Date: 20141222
  Receipt Date: 20141222
  Transmission Date: 20150529
  Serious: Yes (Other)
  Sender: FDA-Public Use
  Company Number: GB-IPSEN BIOPHARMACEUTICALS, INC.-2014-6960

PATIENT

DRUGS (2)
  1. DYSPORT [Suspect]
     Active Substance: ABOBOTULINUMTOXINA
     Indication: PRODUCT USE ISSUE
  2. DYSPORT [Suspect]
     Active Substance: ABOBOTULINUMTOXINA
     Indication: HYPERTONIC BLADDER
     Dosage: 250UNITS
     Route: 043

REACTIONS (4)
  - Wrong technique in drug usage process [Unknown]
  - Therapeutic response unexpected [Unknown]
  - Urinary tract infection [Unknown]
  - Incorrect route of drug administration [Unknown]
